FAERS Safety Report 7152733-4 (Version None)
Quarter: 2010Q4

REPORT INFORMATION
  Report Type: 
  Country: None (occurrence: None)
  Receive Date: 20101123
  Receipt Date: 20101018
  Transmission Date: 20110411
  Serious: No
  Sender: FDA-Public Use
  Company Number: 020794

PATIENT
  Sex: Female
  Weight: 84 kg

DRUGS (4)
  1. CIMZIA [Suspect]
     Indication: RHEUMATOID ARTHRITIS
     Dosage: (400 MG INDUCTION DOSE SUBCUTANEOUS)
     Route: 058
     Dates: start: 20101001
  2. METFORMIN HCL [Concomitant]
  3. SYNTHROID [Concomitant]
  4. CLARITIN /00917501/ [Concomitant]

REACTIONS (6)
  - ARTHRALGIA [None]
  - DRUG INEFFECTIVE [None]
  - FEELING ABNORMAL [None]
  - PELVIC PAIN [None]
  - RHEUMATOID ARTHRITIS [None]
  - UNEVALUABLE EVENT [None]
